FAERS Safety Report 4734950-3 (Version None)
Quarter: 2005Q3

REPORT INFORMATION
  Report Type: 
  Country: None (occurrence: None)
  Receive Date: 20050721
  Receipt Date: 20050425
  Transmission Date: 20060218
  Serious: No
  Sender: FDA-Public Use
  Company Number: 2005SP000397

PATIENT
  Age: 54 Year
  Sex: Male
  Weight: 108.8633 kg

DRUGS (3)
  1. LUNESTA [Suspect]
     Indication: INSOMNIA
     Dosage: 3 MG;HS;ORAL; 10 MG; HS;ORAL
     Route: 048
     Dates: start: 20050422, end: 20050422
  2. LUNESTA [Suspect]
     Indication: INSOMNIA
     Dosage: 3 MG;HS;ORAL; 10 MG; HS;ORAL
     Route: 048
     Dates: start: 20050423
  3. AMBIEN [Concomitant]

REACTIONS (1)
  - MIDDLE INSOMNIA [None]
